FAERS Safety Report 25738096 (Version 3)
Quarter: 2025Q4

REPORT INFORMATION
  Report Type: Spontaneous
  Country: US (occurrence: US)
  Receive Date: 20250829
  Receipt Date: 20251130
  Transmission Date: 20260117
  Serious: No
  Sender: ROCHE
  Company Number: US-ROCHE-10000371598

PATIENT
  Age: 50 Year
  Sex: Female

DRUGS (1)
  1. XOLAIR [Suspect]
     Active Substance: OMALIZUMAB
     Indication: Idiopathic urticaria
     Dosage: STRENGTH: 300 MG/2ML
     Route: 058
     Dates: start: 202408

REACTIONS (5)
  - Off label use [Unknown]
  - Perfume sensitivity [Unknown]
  - Hypoaesthesia oral [Recovered/Resolved]
  - Dysphonia [Unknown]
  - Pharyngeal inflammation [Unknown]

NARRATIVE: CASE EVENT DATE: 20250917
